FAERS Safety Report 12739332 (Version 1)
Quarter: 2016Q3

REPORT INFORMATION
  Report Type: Spontaneous
  Country: US (occurrence: US)
  Receive Date: 20160913
  Receipt Date: 20160913
  Transmission Date: 20161109
  Serious: No
  Sender: FDA-Public Use
  Company Number: US-RECKITT BENCKISER HEALTHCARE INT LIMITED-RB-82816-2016

PATIENT
  Sex: Female

DRUGS (1)
  1. MUCINEX MAXIMUM STRENGTH [Suspect]
     Active Substance: GUAIFENESIN
     Indication: RHINORRHOEA
     Dosage: 1200 MG, SINGLE
     Route: 065
     Dates: start: 20160201

REACTIONS (2)
  - Nasal dryness [Unknown]
  - Epistaxis [Unknown]

NARRATIVE: CASE EVENT DATE: 20160202
